FAERS Safety Report 4815684-3 (Version None)
Quarter: 2005Q4

REPORT INFORMATION
  Report Type: 
  Country: None (occurrence: None)
  Receive Date: 20051031
  Receipt Date: 20050916
  Transmission Date: 20060501
  Serious: Yes (Other)
  Sender: FDA-Public Use
  Company Number: GB-BRISTOL-MYERS SQUIBB COMPANY-13115621

PATIENT
  Age: 58 Year
  Sex: Male
  Weight: 58 kg

DRUGS (4)
  1. REYATAZ [Suspect]
     Indication: HIV INFECTION
     Route: 048
     Dates: start: 20040624, end: 20051001
  2. VIDEX [Concomitant]
     Indication: HIV INFECTION
     Route: 048
     Dates: start: 20030301, end: 20051001
  3. RITONAVIR [Concomitant]
     Indication: HIV INFECTION
     Dates: start: 20030301, end: 20051001
  4. ABACAVIR SULFATE [Concomitant]
     Indication: HIV INFECTION
     Route: 048
     Dates: start: 20030301, end: 20051001

REACTIONS (2)
  - GLOMERULONEPHRITIS MEMBRANOUS [None]
  - NEPHROTIC SYNDROME [None]
